FAERS Safety Report 17447697 (Version 9)
Quarter: 2020Q2

REPORT INFORMATION
  Report Type: Report from Study
  Country: HU (occurrence: HU)
  Receive Date: 20200221
  Receipt Date: 20200602
  Transmission Date: 20200713
  Serious: Yes (Death, Hospitalization)
  Sender: FDA-Public Use
  Company Number: HU-EISAI MEDICAL RESEARCH-EC-2020-070566

PATIENT
  Age: 57 Year
  Sex: Male
  Weight: 53 kg

DRUGS (19)
  1. INSUMAN RAPID [Concomitant]
     Active Substance: INSULIN HUMAN
     Dates: start: 200601
  2. INSUMAN RAPID [Concomitant]
     Active Substance: INSULIN HUMAN
     Dates: start: 200601
  3. PANTOPRAZOLE [Concomitant]
     Active Substance: PANTOPRAZOLE
     Dates: start: 20191216, end: 20200210
  4. DOLFORIN [Concomitant]
     Active Substance: FENTANYL
     Dates: start: 20200128
  5. ANESTHETIC [Concomitant]
     Active Substance: BENZOCAINE\LIDOCAINE HYDROCHLORIDE
     Dates: start: 20200124
  6. MEGYRINA [Concomitant]
     Dates: start: 20200124
  7. PEMBROLIZUMAB. [Suspect]
     Active Substance: PEMBROLIZUMAB
     Indication: NON-SMALL CELL LUNG CANCER METASTATIC
     Route: 041
     Dates: start: 20191104, end: 20200106
  8. BETALOC [Concomitant]
     Active Substance: METOPROLOL TARTRATE
     Dates: start: 200301
  9. FORTIMEL [Concomitant]
     Active Substance: DIETARY SUPPLEMENT
     Dates: start: 20200124
  10. CLEXANE [Concomitant]
     Active Substance: ENOXAPARIN SODIUM
     Dates: start: 20191104, end: 20200217
  11. LENVATINIB [Suspect]
     Active Substance: LENVATINIB
     Indication: NON-SMALL CELL LUNG CANCER METASTATIC
     Route: 048
     Dates: start: 20191104, end: 20200210
  12. INSUMAN BASAL [Concomitant]
     Active Substance: INSULIN HUMAN
     Dates: start: 200601
  13. FURON [Concomitant]
     Active Substance: FUROSEMIDE
     Dates: start: 20191125
  14. PEMBROLIZUMAB. [Suspect]
     Active Substance: PEMBROLIZUMAB
     Route: 041
     Dates: start: 20200124, end: 20200124
  15. CURIDOL [Concomitant]
     Dates: start: 20200124, end: 20200127
  16. APRANAX [Concomitant]
     Active Substance: NAPROXEN
     Dates: start: 20200128
  17. HYDROCODIN [Concomitant]
     Active Substance: DIHYDROCODEINE BITARTRATE
     Dates: start: 20191104, end: 20200210
  18. TENOX [Concomitant]
     Dates: start: 200301
  19. GARGARISMA [Concomitant]
     Dates: start: 20200124

REACTIONS (2)
  - Malnutrition [Fatal]
  - Oral cavity fistula [Not Recovered/Not Resolved]

NARRATIVE: CASE EVENT DATE: 20200210
